FAERS Safety Report 5508530-6 (Version None)
Quarter: 2007Q4

REPORT INFORMATION
  Report Type: 
  Country: None (occurrence: None)
  Receive Date: 20071107
  Receipt Date: 20071026
  Transmission Date: 20080405
  Serious: Yes (Hospitalization, Other)
  Sender: FDA-Public Use
  Company Number: HQWYE810813APR06

PATIENT
  Sex: Female

DRUGS (3)
  1. PREMARIN [Suspect]
  2. MEDROXYPROGESTERONE [Suspect]
  3. CYCRIN [Suspect]

REACTIONS (1)
  - BREAST CANCER METASTATIC [None]
